FAERS Safety Report 19985356 (Version 2)
Quarter: 2021Q4

REPORT INFORMATION
  Report Type: Spontaneous
  Country: FI (occurrence: FI)
  Receive Date: 20211022
  Receipt Date: 20211203
  Transmission Date: 20220303
  Serious: Yes (Hospitalization)
  Sender: FDA-Public Use
  Company Number: FI-JNJFOC-20211029140

PATIENT
  Age: 57 Year
  Sex: Female

DRUGS (5)
  1. SPRAVATO [Suspect]
     Active Substance: ESKETAMINE
     Indication: Asthenia
     Dosage: TOTAL 3 DOSES
     Dates: start: 20210920, end: 20210927
  2. SPRAVATO [Suspect]
     Active Substance: ESKETAMINE
     Indication: Dissociation
     Dates: start: 20210930, end: 20210930
  3. SPRAVATO [Suspect]
     Active Substance: ESKETAMINE
     Indication: Suicidal ideation
  4. LOSARTAN [Concomitant]
     Active Substance: LOSARTAN
     Indication: Hypertension
     Route: 065
  5. TYROSINE [Concomitant]
     Active Substance: TYROSINE
     Indication: Thyroid cancer

REACTIONS (6)
  - Basilar artery thrombosis [Recovered/Resolved]
  - Cerebellar ischaemia [Unknown]
  - Nausea [Unknown]
  - Dizziness [Unknown]
  - Swelling [Unknown]
  - Thinking abnormal [Unknown]

NARRATIVE: CASE EVENT DATE: 20210101
